FAERS Safety Report 10198242 (Version 1)
Quarter: 2014Q2

REPORT INFORMATION
  Report Type: Spontaneous
  Country: US (occurrence: US)
  Receive Date: 20140527
  Receipt Date: 20140527
  Transmission Date: 20141212
  Serious: No
  Sender: FDA-Public Use
  Company Number: US-NOVEN-13US007594

PATIENT
  Age: 7 Year
  Sex: Male

DRUGS (3)
  1. DAYTRANA [Suspect]
     Indication: ATTENTION DEFICIT/HYPERACTIVITY DISORDER
     Dosage: 10 MG, QD
     Route: 062
     Dates: start: 20130823
  2. DAYTRANA [Suspect]
     Dosage: 15 MG, QD
     Route: 062
     Dates: start: 201308, end: 20130822
  3. DAYTRANA [Suspect]
     Dosage: 10 MG, QD
     Route: 062
     Dates: start: 20130806, end: 201308

REACTIONS (7)
  - Psychomotor hyperactivity [Recovered/Resolved]
  - Disturbance in attention [Recovered/Resolved]
  - Drug ineffective [Recovered/Resolved]
  - Mood swings [Recovered/Resolved]
  - Abdominal pain upper [Recovered/Resolved]
  - Drug dose omission [Not Recovered/Not Resolved]
  - Product quality issue [Not Recovered/Not Resolved]
